FAERS Safety Report 11045602 (Version 1)
Quarter: 2015Q2

REPORT INFORMATION
  Report Type: Spontaneous
  Country: US (occurrence: US)
  Receive Date: 20150417
  Receipt Date: 20150417
  Transmission Date: 20150821
  Serious: No
  Sender: FDA-Public Use
  Company Number: US-GLAXOSMITHKLINE-US2015GSK052557

PATIENT
  Sex: Male
  Weight: 115.19 kg

DRUGS (13)
  1. TAFINLAR [Suspect]
     Active Substance: DABRAFENIB MESYLATE
     Indication: MALIGNANT MELANOMA
     Dosage: 150 MG, QD
     Route: 048
     Dates: start: 20150316, end: 201504
  2. AMLODIPINE [Concomitant]
     Active Substance: AMLODIPINE BESYLATE
  3. PROMETHAZINE [Concomitant]
     Active Substance: PROMETHAZINE\PROMETHAZINE HYDROCHLORIDE
  4. ACETAMINOPHEN + CODEINE [Concomitant]
  5. DULOXETINE [Concomitant]
     Active Substance: DULOXETINE
  6. XARELTO [Concomitant]
     Active Substance: RIVAROXABAN
  7. DOXAZOSIN [Concomitant]
     Active Substance: DOXAZOSIN\DOXAZOSIN MESYLATE
  8. CARVEDILOL. [Concomitant]
     Active Substance: CARVEDILOL
  9. PANTOPRAZOLE [Concomitant]
     Active Substance: PANTOPRAZOLE SODIUM
  10. LOVASTATIN. [Concomitant]
     Active Substance: LOVASTATIN
  11. LEVOTHYROXINE [Concomitant]
     Active Substance: LEVOTHYROXINE
  12. ONDANSETRON [Concomitant]
     Active Substance: ONDANSETRON
  13. METOCLOPRAMIDE. [Concomitant]
     Active Substance: METOCLOPRAMIDE

REACTIONS (3)
  - Vomiting [Unknown]
  - Urticaria [Unknown]
  - Erythema [Unknown]
